FAERS Safety Report 18593862 (Version 3)
Quarter: 2021Q2

REPORT INFORMATION
  Report Type: Spontaneous
  Country: DE (occurrence: DE)
  Receive Date: 20201209
  Receipt Date: 20210403
  Transmission Date: 20210717
  Serious: Yes (Other)
  Sender: FDA-Public Use
  Company Number: DE-AUROBINDO-AUR-APL-2020-059860

PATIENT
  Age: 50 Year
  Sex: Male
  Weight: 61 kg

DRUGS (15)
  1. FOLINIC ACID [Suspect]
     Active Substance: LEUCOVORIN
     Dosage: 696 MILLIGRAM
     Route: 065
     Dates: start: 20201111
  2. FLUOROURACIL. [Suspect]
     Active Substance: FLUOROURACIL
     Indication: COLORECTAL CANCER METASTATIC
     Dosage: 696 MILLIGRAM
     Route: 040
     Dates: start: 20201014
  3. FLUOROURACIL. [Suspect]
     Active Substance: FLUOROURACIL
     Dosage: 4176 MILLIGRAM
     Route: 042
     Dates: start: 20201014
  4. VECTIBIX [Suspect]
     Active Substance: PANITUMUMAB
     Indication: COLORECTAL CANCER METASTATIC
     Dosage: 366 MILLIGRAM
     Route: 042
     Dates: start: 20201014
  5. VECTIBIX [Suspect]
     Active Substance: PANITUMUMAB
     Dosage: 370 MILLIGRAM
     Route: 042
     Dates: start: 20201125
  6. FLUOROURACIL. [Suspect]
     Active Substance: FLUOROURACIL
     Dosage: 700 MILLIGRAM
     Route: 040
     Dates: start: 20201125
  7. DOXYCYCLIN RATIOPHARM [Concomitant]
     Indication: RASH
     Dosage: 200 MILLIGRAM, ONCE A DAY (100 MILLIGRAM, TWO TIMES A DAY)
     Route: 048
     Dates: start: 20201014
  8. VECTIBIX [Suspect]
     Active Substance: PANITUMUMAB
     Dosage: 366 MILLIGRAM
     Route: 042
     Dates: start: 20201223
  9. FLUOROURACIL. [Suspect]
     Active Substance: FLUOROURACIL
     Dosage: 696 MILLIGRAM
     Route: 040
     Dates: start: 20201111
  10. FOLINIC ACID [Suspect]
     Active Substance: LEUCOVORIN
     Indication: COLORECTAL CANCER METASTATIC
     Dosage: 696 MILLIGRAM
     Route: 065
     Dates: start: 20201014
  11. FOLINIC ACID [Suspect]
     Active Substance: LEUCOVORIN
     Dosage: 700  MILLIGRAM
     Route: 065
     Dates: start: 20201125
  12. IRINOTECAN [Suspect]
     Active Substance: IRINOTECAN
     Indication: COLORECTAL CANCER METASTATIC
     Dosage: 313 MILLIGRAM
     Route: 065
     Dates: start: 20201014
  13. FOLINIC ACID [Suspect]
     Active Substance: LEUCOVORIN
     Dosage: 396 MILLIGRAM
     Route: 065
     Dates: start: 20201028
  14. FLUOROURACIL. [Suspect]
     Active Substance: FLUOROURACIL
     Dosage: 396 MILLIGRAM
     Route: 040
     Dates: start: 20201028
  15. FLUOROURACIL. [Suspect]
     Active Substance: FLUOROURACIL
     Dosage: 4180  MILLIGRAM
     Route: 042
     Dates: start: 20201125

REACTIONS (2)
  - Dermatitis bullous [Unknown]
  - Rash [Unknown]

NARRATIVE: CASE EVENT DATE: 20201111
